FAERS Safety Report 18531624 (Version 1)
Quarter: 2020Q4

REPORT INFORMATION
  Report Type: Spontaneous
  Country: US (occurrence: US)
  Receive Date: 20201123
  Receipt Date: 20201123
  Transmission Date: 20210114
  Serious: No
  Sender: FDA-Public Use
  Company Number: US-AMGEN-USASP2020186593

PATIENT
  Age: 73 Year
  Sex: Female

DRUGS (2)
  1. PREDNISONE. [Concomitant]
     Active Substance: PREDNISONE
  2. XGEVA [Suspect]
     Active Substance: DENOSUMAB
     Indication: RENAL CANCER
     Dosage: UNK
     Route: 065
     Dates: start: 20201029

REACTIONS (1)
  - Pain [Unknown]

NARRATIVE: CASE EVENT DATE: 2020
